FAERS Safety Report 5706089-1 (Version None)
Quarter: 2008Q2

REPORT INFORMATION
  Report Type: 
  Country: None (occurrence: None)
  Receive Date: 20080415
  Receipt Date: 20080331
  Transmission Date: 20081010
  Serious: Yes (Other)
  Sender: FDA-Public Use
  Company Number: FR-GENENTECH-258835

PATIENT
  Sex: Female

DRUGS (2)
  1. AVASTIN [Suspect]
     Indication: BREAST CANCER METASTATIC
     Dosage: 730 MG, UNK
     Route: 042
     Dates: start: 20080109
  2. TAXOL [Suspect]
     Indication: BREAST CANCER METASTATIC
     Dosage: 160 MG, UNK
     Route: 042
     Dates: start: 20080109

REACTIONS (1)
  - SCOTOMA [None]
